FAERS Safety Report 20469564 (Version 3)
Quarter: 2022Q2

REPORT INFORMATION
  Report Type: Report from Study
  Country: FR (occurrence: FR)
  Receive Date: 20220214
  Receipt Date: 20220504
  Transmission Date: 20220721
  Serious: Yes (Hospitalization)
  Sender: FDA-Public Use
  Company Number: FR-SERVIER-S22001285

PATIENT

DRUGS (10)
  1. PEGASPARGASE [Suspect]
     Active Substance: PEGASPARGASE
     Indication: Acute lymphocytic leukaemia
     Dosage: 1537.5 IU ON D4 AND D43
     Route: 042
     Dates: start: 20211029, end: 20211214
  2. VINCRISTINE [Concomitant]
     Active Substance: VINCRISTINE
     Indication: Acute lymphocytic leukaemia
     Dosage: 0.9 MG ON D1, D8, D15, D43, AND D50
     Route: 042
     Dates: start: 20211026, end: 20211221
  3. DEXAMETHASONE [Concomitant]
     Active Substance: DEXAMETHASONE
     Indication: Acute lymphocytic leukaemia
     Dosage: 6 MG ON D1 TO D7, AND D15 TO D21
     Route: 048
     Dates: start: 20211026, end: 20211115
  4. DOXORUBICIN [Concomitant]
     Active Substance: DOXORUBICIN
     Indication: Acute lymphocytic leukaemia
     Dosage: 15.6 MG ON D1, D8, AND D15
     Route: 042
     Dates: start: 20211026, end: 20211109
  5. METHOTREXATE [Concomitant]
     Active Substance: METHOTREXATE
     Indication: Acute lymphocytic leukaemia
     Dosage: 12 MG ON D4 AD D31
     Route: 037
     Dates: start: 20211029, end: 20211125
  6. HYDROCORTISONE [Concomitant]
     Active Substance: HYDROCORTISONE
     Indication: Acute lymphocytic leukaemia
     Dosage: 15 MG ON D4 AND D31
     Route: 037
     Dates: start: 20211029, end: 20211125
  7. CYTARABINE [Concomitant]
     Active Substance: CYTARABINE
     Indication: Acute lymphocytic leukaemia
     Dosage: 30 MG ON D4 AND D31
     Route: 037
     Dates: start: 20211029, end: 20211125
  8. CYTARABINE [Concomitant]
     Active Substance: CYTARABINE
     Dosage: 46.95 MG, D31 TO D34, BUT NOT D38 TO D41
     Route: 042
     Dates: start: 20211125, end: 20211128
  9. CYCLOPHOSPHAMIDE [Concomitant]
     Active Substance: CYCLOPHOSPHAMIDE
     Indication: Acute lymphocytic leukaemia
     Dosage: 620 MG, D29
     Route: 042
     Dates: start: 20211123
  10. MERCAPTOPURINE [Concomitant]
     Active Substance: MERCAPTOPURINE
     Indication: Acute lymphocytic leukaemia
     Dosage: 50 MG, D29 TO D42
     Route: 048
     Dates: start: 20211123, end: 20211206

REACTIONS (3)
  - Sepsis [Not Recovered/Not Resolved]
  - Respiratory syncytial virus infection [Recovered/Resolved]
  - Bacterial sepsis [Recovered/Resolved]

NARRATIVE: CASE EVENT DATE: 20211116
